FAERS Safety Report 4825365-8 (Version None)
Quarter: 2005Q4

REPORT INFORMATION
  Report Type: 
  Country: None (occurrence: None)
  Receive Date: 20051111
  Receipt Date: 20051107
  Transmission Date: 20060501
  Serious: Yes (Hospitalization, Disabling)
  Sender: FDA-Public Use
  Company Number: GB-ROCHE-424042

PATIENT
  Age: 49 Year
  Sex: Female

DRUGS (1)
  1. CEFTRIAXZONE [Suspect]
     Indication: PYELONEPHRITIS ACUTE
     Route: 042
     Dates: start: 20050923, end: 20050924

REACTIONS (3)
  - HYPOTENSION [None]
  - PARAESTHESIA [None]
  - TACHYCARDIA [None]
